FAERS Safety Report 10244672 (Version 1)
Quarter: 2014Q2

REPORT INFORMATION
  Report Type: Spontaneous
  Country: IT (occurrence: IT)
  Receive Date: 20140618
  Receipt Date: 20140618
  Transmission Date: 20141212
  Serious: Yes (Hospitalization)
  Sender: FDA-Public Use
  Company Number: IT-GLAXOSMITHKLINE-B1004242A

PATIENT
  Age: 21 Year
  Sex: Female

DRUGS (3)
  1. LAMICTAL [Suspect]
     Indication: EPILEPSY
     Dosage: 300MG PER DAY
     Route: 048
     Dates: start: 20131204, end: 20140129
  2. CONTRAMAL [Concomitant]
     Indication: BACK PAIN
     Dosage: 10DROP PER DAY
     Route: 048
     Dates: start: 20131204, end: 20140129
  3. RIVOTRIL [Concomitant]
     Indication: EPILEPSY
     Dosage: 2MG PER DAY
     Route: 048
     Dates: start: 20131204, end: 20140129

REACTIONS (4)
  - Vision blurred [Recovered/Resolved]
  - Diplopia [Recovered/Resolved]
  - Balance disorder [Recovered/Resolved]
  - Headache [Recovered/Resolved]
